FAERS Safety Report 5727186-0 (Version None)
Quarter: 2008Q2

REPORT INFORMATION
  Report Type: 
  Country: None (occurrence: None)
  Receive Date: 20080430
  Receipt Date: 20080418
  Transmission Date: 20081010
  Serious: Yes (Disabling, Other)
  Sender: FDA-Public Use
  Company Number: 100#03#2008-02296

PATIENT
  Age: 59 Year
  Sex: Female

DRUGS (4)
  1. TRAMADOL HCL [Suspect]
     Indication: OSTEOARTHRITIS
     Dosage: 2 DF FOUR TIMES DAILY, ORAL
     Route: 048
     Dates: start: 20080229, end: 20080331
  2. ADCORTYL (TRIAMCINOLONE) [Concomitant]
  3. BETNESOL (BETAMETHASONE SODIUM PHOSPHATE) [Concomitant]
  4. DIFFLAM (BENZYDAMINE HYDROCHLORIDE) [Concomitant]

REACTIONS (2)
  - LOSS OF CONSCIOUSNESS [None]
  - MALAISE [None]
